FAERS Safety Report 17806867 (Version 3)
Quarter: 2020Q4

REPORT INFORMATION
  Report Type: Spontaneous
  Country: US (occurrence: US)
  Receive Date: 20200520
  Receipt Date: 20201211
  Transmission Date: 20210113
  Serious: No
  Sender: FDA-Public Use
  Company Number: US-PFIZER INC-2020199767

PATIENT
  Age: 55 Year
  Sex: Female

DRUGS (1)
  1. INLYTA [Suspect]
     Active Substance: AXITINIB
     Indication: RENAL CANCER
     Dosage: 5 MG, 2X/DAY (1 TABLET EVERY 12 HOURS) (TAKE 1 TABLET BY MOUTH EVERY 12 HOURS WHOLE WITH WATER)
     Route: 048
     Dates: start: 202002

REACTIONS (7)
  - Arthralgia [Unknown]
  - Product dose omission issue [Unknown]
  - Pain in extremity [Unknown]
  - Asthenia [Unknown]
  - Oral pain [Unknown]
  - Paraesthesia [Unknown]
  - Hypoaesthesia [Not Recovered/Not Resolved]

NARRATIVE: CASE EVENT DATE: 2020
